FAERS Safety Report 19089856 (Version 1)
Quarter: 2021Q2

REPORT INFORMATION
  Report Type: Report from Study
  Country: US (occurrence: US)
  Receive Date: 20210403
  Receipt Date: 20210403
  Transmission Date: 20210717
  Serious: Yes (Other)
  Sender: FDA-Public Use
  Company Number: US-JNJFOC-20210330962

PATIENT
  Age: 75 Year
  Sex: Female
  Weight: 73.2 kg

DRUGS (1)
  1. MACITENTAN [Suspect]
     Active Substance: MACITENTAN
     Indication: PULMONARY ARTERIAL HYPERTENSION
     Route: 048

REACTIONS (9)
  - Abdominal distension [Unknown]
  - Polyp [Unknown]
  - Rhinorrhoea [Unknown]
  - COVID-19 [Unknown]
  - Skin discolouration [Unknown]
  - Cerebrovascular accident [Unknown]
  - Oropharyngeal pain [Unknown]
  - Sneezing [Unknown]
  - Productive cough [Unknown]
